FAERS Safety Report 7377651-8 (Version None)
Quarter: 2011Q1

REPORT INFORMATION
  Report Type: 
  Country: None (occurrence: None)
  Receive Date: 20110316
  Receipt Date: 20110304
  Transmission Date: 20110831
  Serious: Yes (Other)
  Sender: FDA-Public Use
  Company Number: 2011-0665

PATIENT
  Age: 61 Year
  Sex: Female
  Weight: 104.3 kg

DRUGS (8)
  1. COMTAN [Concomitant]
  2. LEVOXYL [Concomitant]
  3. APOKIN (APOMORPHINE HYDROCHLORIDE) (APOMORPHINE HYDROCHLORIDE) [Suspect]
     Indication: PARKINSON'S DISEASE
     Dosage: 0.6 MG (0.2 MG, 3 IN 1 D), SUBCUTANEOUS
     Route: 058
     Dates: start: 20040101, end: 20100301
  4. AMIODARONE HCL [Suspect]
     Indication: PRODUCT USED FOR UNKNOWN INDICATION
  5. REQUIP [Concomitant]
  6. POTASSIUM (POTASSIUM) [Concomitant]
  7. MONOPRIL [Concomitant]
  8. SINEMET [Concomitant]

REACTIONS (2)
  - CARDIAC DISORDER [None]
  - ELECTROCARDIOGRAM QT PROLONGED [None]
